FAERS Safety Report 8773978 (Version 1)
Quarter: 2012Q4

REPORT INFORMATION
  Report Type: 
  Country: US (occurrence: US)
  Receive Date: 20120907
  Receipt Date: 20120907
  Transmission Date: 20130627
  Serious: No
  Sender: FDA-Public Use
  Company Number: US-PFIZER INC-2012217891

PATIENT
  Age: 56 Year
  Sex: Male
  Weight: 76.19 kg

DRUGS (2)
  1. ADVIL MIGRAINE [Suspect]
     Indication: MIGRAINE
     Dosage: UNK
     Dates: end: 20120904
  2. IMITREX [Concomitant]
     Indication: MIGRAINE
     Dosage: 100 mg, UNK
     Route: 048

REACTIONS (2)
  - Drug ineffective [Unknown]
  - Overdose [Unknown]
